FAERS Safety Report 15000588 (Version 1)
Quarter: 2018Q2

REPORT INFORMATION
  Report Type: Spontaneous
  Country: None (occurrence: US)
  Receive Date: 20180612
  Receipt Date: 20180612
  Transmission Date: 20180711
  Serious: Yes (Disabling, Other)
  Sender: FDA-Public Use
  Company Number: US-LINDE-US-LHC-2018135

PATIENT
  Age: 59 Year
  Sex: Male

DRUGS (1)
  1. NITROUS OXIDE. [Suspect]
     Active Substance: NITROUS OXIDE
     Indication: MAINTENANCE OF ANAESTHESIA

REACTIONS (3)
  - Deafness neurosensory [Recovering/Resolving]
  - Inner ear disorder [Unknown]
  - Tinnitus [Not Recovered/Not Resolved]
